FAERS Safety Report 7734247-3 (Version None)
Quarter: 2011Q3

REPORT INFORMATION
  Report Type: 
  Country: None (occurrence: None)
  Receive Date: 20110901
  Receipt Date: 20110819
  Transmission Date: 20111222
  Serious: Yes (Hospitalization, Other)
  Sender: FDA-Public Use
  Company Number: 2011MA012292

PATIENT
  Age: 71 Year
  Sex: Female

DRUGS (20)
  1. LOSARTAN POTASSIUM [Concomitant]
  2. DIGOXIN [Suspect]
     Indication: NEUROPATHY PERIPHERAL
     Dosage: 0.250 MG; QD; PO
     Route: 048
     Dates: start: 20030201, end: 20040201
  3. ESOMEPRAZOLE SODIUM [Concomitant]
  4. WARFARIN SODIUM [Concomitant]
  5. ACIPHEX [Concomitant]
  6. DIGOXIN [Suspect]
     Indication: CARDIAC FAILURE CONGESTIVE
     Dosage: 0.25 MG; QD; PO
     Route: 048
     Dates: start: 20050201, end: 20070723
  7. EZETIMIBE [Concomitant]
  8. AMBIEN [Concomitant]
  9. COZAAR [Concomitant]
  10. ELAVIL [Concomitant]
  11. FUROSEMIDE [Concomitant]
  12. DEXTROPROPOXYPHENE [Concomitant]
  13. CELEBREX [Concomitant]
  14. COREG [Concomitant]
  15. POTASSIUM [Concomitant]
  16. METFORMIN HCL [Concomitant]
  17. ACYCLOVIR [Concomitant]
  18. LORTAB [Concomitant]
  19. PREGABALIN [Concomitant]
  20. POTASSIUM CHLORIDE [Concomitant]

REACTIONS (42)
  - HYPERCHOLESTEROLAEMIA [None]
  - FATIGUE [None]
  - SOMNOLENCE [None]
  - HEADACHE [None]
  - LEUKOCYTOSIS [None]
  - RENAL FAILURE [None]
  - MITRAL VALVE STENOSIS [None]
  - FEELING ABNORMAL [None]
  - INTERNATIONAL NORMALISED RATIO INCREASED [None]
  - TOXICITY TO VARIOUS AGENTS [None]
  - DILATATION ATRIAL [None]
  - RENAL CYST [None]
  - DECREASED APPETITE [None]
  - HYPERKALAEMIA [None]
  - ECONOMIC PROBLEM [None]
  - ELECTROCARDIOGRAM ABNORMAL [None]
  - HODGKIN'S DISEASE [None]
  - DEHYDRATION [None]
  - GASTRITIS [None]
  - GASTRIC POLYPS [None]
  - INJURY [None]
  - FAMILY STRESS [None]
  - NAUSEA [None]
  - EXERCISE TOLERANCE DECREASED [None]
  - LEFT VENTRICULAR HYPERTROPHY [None]
  - ASTHENIA [None]
  - WEIGHT DECREASED [None]
  - RENAL FAILURE ACUTE [None]
  - HEPATIC STEATOSIS [None]
  - PALPITATIONS [None]
  - DIZZINESS [None]
  - VOMITING [None]
  - TRANSIENT ISCHAEMIC ATTACK [None]
  - COUGH [None]
  - SPLENOMEGALY [None]
  - DYSPNOEA EXERTIONAL [None]
  - AORTIC VALVE DISEASE [None]
  - VENTRICULAR ARRHYTHMIA [None]
  - DIARRHOEA [None]
  - HYPOAESTHESIA [None]
  - TRICUSPID VALVE INCOMPETENCE [None]
  - LYMPHADENOPATHY [None]
